FAERS Safety Report 17285088 (Version 1)
Quarter: 2020Q1

REPORT INFORMATION
  Report Type: Spontaneous
  Country: US (occurrence: US)
  Receive Date: 20200117
  Receipt Date: 20200117
  Transmission Date: 20200409
  Serious: Yes (Disabling, Other)
  Sender: FDA-Public Use
  Company Number: US-TARO-2018TAR00938

PATIENT
  Sex: Male

DRUGS (3)
  1. OTHER UNSPECIFIED MEDICATIONS [Suspect]
     Active Substance: UNSPECIFIED INGREDIENT
     Indication: BLINDNESS
  2. AMIODARONE HCL TABLET 400 MG [Suspect]
     Active Substance: AMIODARONE HYDROCHLORIDE
     Indication: ATRIAL FIBRILLATION
     Dosage: UNK
     Dates: start: 201606
  3. OTHER UNSPECIFIED MEDICATIONS [Suspect]
     Active Substance: UNSPECIFIED INGREDIENT
     Indication: OPTIC ISCHAEMIC NEUROPATHY

REACTIONS (9)
  - Eye irritation [Unknown]
  - Optic ischaemic neuropathy [Unknown]
  - Headache [Unknown]
  - Unevaluable event [Unknown]
  - Coordination abnormal [Unknown]
  - Dizziness [Unknown]
  - Off label use [Unknown]
  - Dry eye [Unknown]
  - Blindness [Unknown]

NARRATIVE: CASE EVENT DATE: 201606
